FAERS Safety Report 17472208 (Version 3)
Quarter: 2021Q2

REPORT INFORMATION
  Report Type: Spontaneous
  Country: US (occurrence: US)
  Receive Date: 20200228
  Receipt Date: 20210615
  Transmission Date: 20210716
  Serious: No
  Sender: FDA-Public Use
  Company Number: US-BIOGEN-2020BI00844375

PATIENT
  Age: 56 Year
  Sex: Female

DRUGS (2)
  1. PLEGRIDY [Suspect]
     Active Substance: PEGINTERFERON BETA-1A
     Route: 058
     Dates: start: 202002
  2. PLEGRIDY [Suspect]
     Active Substance: PEGINTERFERON BETA-1A
     Indication: MULTIPLE SCLEROSIS
     Route: 058
     Dates: start: 20200206

REACTIONS (2)
  - Injection site urticaria [Unknown]
  - Injection site swelling [Unknown]

NARRATIVE: CASE EVENT DATE: 20200203
